FAERS Safety Report 15978115 (Version 1)
Quarter: 2019Q1

REPORT INFORMATION
  Report Type: Spontaneous
  Country: US (occurrence: US)
  Receive Date: 20190218
  Receipt Date: 20190218
  Transmission Date: 20190418
  Serious: No
  Sender: FDA-Public Use
  Company Number: US-SA-2019SA044060

PATIENT
  Age: 61 Year
  Sex: Male
  Weight: 79.4 kg

DRUGS (17)
  1. FISH OIL [Concomitant]
     Active Substance: FISH OIL
  2. FLUTICASONE PROPIONATE. [Concomitant]
     Active Substance: FLUTICASONE PROPIONATE
  3. FENOFIBRATE. [Concomitant]
     Active Substance: FENOFIBRATE
  4. PAROXETINE HYDROCHLORIDE. [Concomitant]
     Active Substance: PAROXETINE HYDROCHLORIDE
  5. FINASTERIDE. [Concomitant]
     Active Substance: FINASTERIDE
  6. METFORMIN HYDROCHLORIDE. [Concomitant]
     Active Substance: METFORMIN HYDROCHLORIDE
  7. SERNIVO [Concomitant]
     Active Substance: BETAMETHASONE DIPROPIONATE
  8. NEXIUM I.V. [Concomitant]
     Active Substance: ESOMEPRAZOLE SODIUM
  9. ZOCOR [Concomitant]
     Active Substance: SIMVASTATIN
  10. LORAZEPAM. [Concomitant]
     Active Substance: LORAZEPAM
  11. TRIANEX [Concomitant]
     Active Substance: TRIAMCINOLONE ACETONIDE
  12. TRIAMCINOLONE ACETONIDE. [Concomitant]
     Active Substance: TRIAMCINOLONE ACETONIDE
  13. FOLIC ACID. [Concomitant]
     Active Substance: FOLIC ACID
  14. ATORVASTATIN CALCIUM. [Concomitant]
     Active Substance: ATORVASTATIN CALCIUM
  15. DESOXIMETASONE. [Concomitant]
     Active Substance: DESOXIMETASONE
  16. IBANDRONATE SODIUM. [Concomitant]
     Active Substance: IBANDRONATE SODIUM
  17. DUPIXENT [Suspect]
     Active Substance: DUPILUMAB
     Indication: DERMATITIS ATOPIC
     Dosage: 300 MG, QOW
     Route: 058
     Dates: start: 201803

REACTIONS (1)
  - Dermatitis [Recovered/Resolved]
